FAERS Safety Report 4452168-9 (Version None)
Quarter: 2004Q3

REPORT INFORMATION
  Report Type: 
  Country: None (occurrence: None)
  Receive Date: 20040916
  Receipt Date: 20040916
  Transmission Date: 20050211
  Serious: Yes (Disabling)
  Sender: FDA-Public Use
  Company Number: None

PATIENT
  Age: 65 Year
  Sex: Female
  Weight: 52.1637 kg

DRUGS (1)
  1. ZICAM HOMEOPATHIC GEL (ZINCOM GLOCONICUM) [Suspect]
     Indication: NASOPHARYNGITIS
     Dosage: 2-3 TIMES DAILY  NASAL
     Route: 045
     Dates: start: 20030101, end: 20040101

REACTIONS (1)
  - ANOSMIA [None]
